FAERS Safety Report 4646748-5 (Version None)
Quarter: 2005Q2

REPORT INFORMATION
  Report Type: 
  Country: None (occurrence: None)
  Receive Date: 20050422
  Receipt Date: 20050422
  Transmission Date: 20051028
  Serious: Yes (Other)
  Sender: FDA-Public Use
  Company Number: None

PATIENT
  Age: 57 Year
  Sex: Male
  Weight: 105.7 kg

DRUGS (13)
  1. FLUVASTATIN [Suspect]
  2. PRAZOSIN HCL [Concomitant]
  3. SERTRALINE HCL [Concomitant]
  4. DILANTIN [Concomitant]
  5. PHENOBARBITAL [Concomitant]
  6. QUETIAPINE FUMARATE [Concomitant]
  7. ISOSORBIDE DINITRATE [Concomitant]
  8. FOSINOPRIL NA [Concomitant]
  9. DILTIAZEM (INWOOD) [Concomitant]
  10. OMEPRAZOLE [Concomitant]
  11. NITROGLYCERIN [Concomitant]
  12. VITAMIN B COMPLEX/VITAMIN C [Concomitant]
  13. ALBUTEROL SULFATE AND IPRATROPIUM BROMIDE [Concomitant]

REACTIONS (1)
  - MYALGIA [None]
